FAERS Safety Report 8139124-4 (Version None)
Quarter: 2012Q1

REPORT INFORMATION
  Report Type: 
  Country: None (occurrence: None)
  Receive Date: 20120215
  Receipt Date: 20120206
  Transmission Date: 20120608
  Serious: Yes (Hospitalization, Other)
  Sender: FDA-Public Use
  Company Number: US-MERCK-1111USA03483

PATIENT
  Age: 49 Year
  Sex: Female
  Weight: 66 kg

DRUGS (21)
  1. FOSAMAX [Suspect]
     Indication: OSTEOPENIA
     Route: 048
     Dates: start: 20020101, end: 20050101
  2. HORSE CHESTNUT [Concomitant]
     Route: 048
     Dates: start: 19950101, end: 20090101
  3. MEGA [Concomitant]
     Route: 048
     Dates: start: 19950101, end: 20090101
  4. CALCIUM CITRATE [Concomitant]
     Route: 048
     Dates: start: 19950101, end: 20090101
  5. TRILIPIX [Concomitant]
     Indication: BLOOD CHOLESTEROL INCREASED
     Route: 048
     Dates: start: 20000101
  6. RED YEAST [Concomitant]
     Route: 048
     Dates: start: 19950101, end: 20090101
  7. VITAMIN B COMPLEX [Concomitant]
     Route: 048
     Dates: start: 19950101, end: 20090101
  8. CHONDROITIN SULFATE SODIUM AND GLUCOSAMINE SULFATE [Concomitant]
     Route: 048
     Dates: start: 19950101, end: 20090101
  9. STANDARD PROCESS LIGAPLEX II [Concomitant]
     Route: 048
     Dates: start: 19950101, end: 20090101
  10. ARTICHOKE [Concomitant]
     Route: 048
     Dates: start: 19950101, end: 20090101
  11. LIPITOR [Concomitant]
     Indication: BLOOD CHOLESTEROL INCREASED
     Route: 048
     Dates: start: 20000101
  12. VITAMINS (UNSPECIFIED) [Concomitant]
     Route: 048
     Dates: start: 19950101, end: 20090101
  13. CALCIUM (UNSPECIFIED) [Concomitant]
     Route: 048
     Dates: start: 19950101, end: 20090101
  14. FLAXSEED [Concomitant]
     Route: 048
     Dates: start: 19950101, end: 20090101
  15. VITAMIN D (UNSPECIFIED) [Concomitant]
     Route: 048
     Dates: start: 19950101
  16. [THERAPY UNSPECIFIED] [Concomitant]
     Route: 048
     Dates: start: 19950101, end: 20090101
  17. ASCORBIC ACID AND COLLAGEN [Concomitant]
     Route: 048
     Dates: start: 19950101, end: 20090101
  18. VALTREX [Concomitant]
     Indication: HERPES SIMPLEX
     Route: 065
     Dates: start: 20000101
  19. TOPROL-XL [Concomitant]
     Indication: HYPERTENSION
     Route: 048
     Dates: start: 20000101
  20. DYAZIDE [Concomitant]
     Indication: HYPERTENSION
     Route: 048
     Dates: start: 20000101
  21. FOSAMAX PLUS D [Suspect]
     Indication: OSTEOPENIA
     Route: 048
     Dates: start: 20050101, end: 20090101

REACTIONS (20)
  - FRACTURE NONUNION [None]
  - UTERINE LEIOMYOMA [None]
  - OSTEOPETROSIS [None]
  - FEMUR FRACTURE [None]
  - BREAST DISORDER [None]
  - FALL [None]
  - NON-HODGKIN'S LYMPHOMA [None]
  - OSTEOPOROSIS [None]
  - REFLUX LARYNGITIS [None]
  - BURSITIS [None]
  - CERVICAL DYSPLASIA [None]
  - VITAMIN D DEFICIENCY [None]
  - CONSTIPATION [None]
  - GASTROOESOPHAGEAL REFLUX DISEASE [None]
  - ANGIOPATHY [None]
  - OSTEOARTHRITIS [None]
  - RIB FRACTURE [None]
  - ARTHRALGIA [None]
  - OVARIAN CYST [None]
  - RESTLESS LEGS SYNDROME [None]
